FAERS Safety Report 4806656-3 (Version None)
Quarter: 2005Q4

REPORT INFORMATION
  Report Type: 
  Country: None (occurrence: None)
  Receive Date: 20051019
  Receipt Date: 20051003
  Transmission Date: 20060501
  Serious: Yes (Other)
  Sender: FDA-Public Use
  Company Number: USA0509109178

PATIENT
  Age: 79 Year
  Sex: Female

DRUGS (4)
  1. HUMATROPE [Suspect]
     Indication: BONE DISORDER
     Dates: start: 20020101
  2. ACTONEL [Concomitant]
  3. SYNTHROID [Concomitant]
  4. PREDNISONE [Concomitant]

REACTIONS (6)
  - CATARACT [None]
  - MACULAR DEGENERATION [None]
  - NEOPLASM RECURRENCE [None]
  - OSTEOPOROSIS [None]
  - PHARMACEUTICAL PRODUCT COMPLAINT [None]
  - PITUITARY TUMOUR [None]
